FAERS Safety Report 25768272 (Version 1)
Quarter: 2025Q3

REPORT INFORMATION
  Report Type: Spontaneous
  Country: US (occurrence: US)
  Receive Date: 20250905
  Receipt Date: 20250905
  Transmission Date: 20251021
  Serious: No
  Sender: DOMPE FARMACEUTICI
  Company Number: US-FARMAPROD-202506-1962

PATIENT
  Sex: Female
  Weight: 45.0 kg

DRUGS (13)
  1. OXERVATE [Suspect]
     Active Substance: CENEGERMIN-BKBJ
     Indication: Neurotrophic keratopathy
     Route: 047
     Dates: start: 20250605
  2. PRUNELAX [Concomitant]
  3. ASCORBIC ACID\SODIUM ASCORBATE [Concomitant]
     Active Substance: ASCORBIC ACID\SODIUM ASCORBATE
  4. ZINC-15 [Concomitant]
  5. CHOLECALCIFEROL\FISH OIL [Concomitant]
     Active Substance: CHOLECALCIFEROL\FISH OIL
  6. SELENIUM [Concomitant]
     Active Substance: SELENIUM
  7. MULTIVITAMIN DAILY [ASCORBIC ACID;NICOTINAMIDE;RETINOL;RIBOFLAVIN;THIA [Concomitant]
  8. VITAMIN B12 [Concomitant]
     Active Substance: CYANOCOBALAMIN
  9. PYRIDOXINE HYDROCHLORIDE [Concomitant]
     Active Substance: PYRIDOXINE HYDROCHLORIDE
  10. NAPHAZOLINE HYDROCHLORIDE [Concomitant]
     Active Substance: NAPHAZOLINE HYDROCHLORIDE
  11. CYCLOSPORINE [Concomitant]
     Active Substance: CYCLOSPORINE
  12. LEVOTHYROXINE SODIUM [Concomitant]
     Active Substance: LEVOTHYROXINE SODIUM
  13. LATANOPROST [Concomitant]
     Active Substance: LATANOPROST

REACTIONS (1)
  - Eye pain [Unknown]
